FAERS Safety Report 10928577 (Version 1)
Quarter: 2015Q1

REPORT INFORMATION
  Report Type: Spontaneous
  Country: US (occurrence: None)
  Receive Date: 20150318
  Receipt Date: 20150318
  Transmission Date: 20150721
  Serious: Yes (Disabling)
  Sender: FDA-Public Use
  Company Number: None

PATIENT
  Age: 49 Year
  Sex: Female
  Weight: 77.11 kg

DRUGS (9)
  1. PLEGRIDY [Suspect]
     Active Substance: PEGINTERFERON BETA-1A
     Indication: RELAPSING-REMITTING MULTIPLE SCLEROSIS
     Dosage: 1 SINGLE DOSE PREFILLED AUTO INJECTOR
     Route: 058
     Dates: start: 20150123, end: 20150220
  2. VITAMIN C [Concomitant]
     Active Substance: ASCORBIC ACID
  3. CALCIUM [Concomitant]
     Active Substance: CALCIUM
  4. ALPRAZOLAM. [Concomitant]
     Active Substance: ALPRAZOLAM
  5. PROGESTERONE. [Concomitant]
     Active Substance: PROGESTERONE
  6. PREMARIN [Concomitant]
     Active Substance: ESTROGENS, CONJUGATED
  7. D3 [Concomitant]
     Active Substance: 25-HYDROXYCHOLECALCIFEROL, 5-TRANS-
  8. ZYRTEC [Concomitant]
     Active Substance: CETIRIZINE HYDROCHLORIDE
  9. OMEGA-3 ACIDS [Concomitant]
     Active Substance: OMEGA-3 FATTY ACIDS

REACTIONS (9)
  - Fatigue [None]
  - Palpitations [None]
  - Feeling abnormal [None]
  - Activities of daily living impaired [None]
  - Influenza like illness [None]
  - Anxiety [None]
  - Mood swings [None]
  - Fear [None]
  - Posture abnormal [None]

NARRATIVE: CASE EVENT DATE: 20150123
